FAERS Safety Report 8921933 (Version 1)
Quarter: 2012Q4

REPORT INFORMATION
  Report Type: Spontaneous
  Country: US (occurrence: None)
  Receive Date: 20121119
  Receipt Date: 20121119
  Transmission Date: 20130627
  Serious: Yes (Hospitalization)
  Sender: FDA-Public Use
  Company Number: None

PATIENT
  Age: 55 Year
  Sex: Female
  Weight: 53.52 kg

DRUGS (8)
  1. AMOXICILLIN [Suspect]
     Indication: UPPER RESPIRATORY INFECTION
     Dates: start: 20121115, end: 20121122
  2. LISINOPRIL [Concomitant]
  3. ASPIRIN [Concomitant]
  4. CLOPIDOGREL [Concomitant]
  5. ATROVASTATIN [Concomitant]
  6. LEVOTHYROXINE [Concomitant]
  7. METHOTREXATE [Concomitant]
  8. NITROGLYCERIN [Concomitant]

REACTIONS (4)
  - Dyspnoea [None]
  - Lip swelling [None]
  - Urticaria [None]
  - Pruritus [None]
